FAERS Safety Report 7820980-1 (Version None)
Quarter: 2011Q4

REPORT INFORMATION
  Report Type: 
  Country: None (occurrence: None)
  Receive Date: 20111018
  Receipt Date: 20101122
  Transmission Date: 20120403
  Serious: No
  Sender: FDA-Public Use
  Company Number: US-ASTRAZENECA-2010SE55757

PATIENT
  Sex: Male

DRUGS (2)
  1. SYMBICORT [Suspect]
     Indication: CHRONIC OBSTRUCTIVE PULMONARY DISEASE
     Dosage: 160/4.5 UG
     Route: 055
  2. ADVAIR DISKUS 100/50 [Concomitant]

REACTIONS (4)
  - FEELING ABNORMAL [None]
  - WHEEZING [None]
  - RESTLESSNESS [None]
  - FEELING JITTERY [None]
